FAERS Safety Report 24377380 (Version 1)
Quarter: 2024Q3

REPORT INFORMATION
  Report Type: Spontaneous
  Country: US (occurrence: US)
  Receive Date: 20240930
  Receipt Date: 20240930
  Transmission Date: 20241016
  Serious: No
  Sender: AUROBINDO
  Company Number: US-AUROBINDO-AUR-APL-2023-067505

PATIENT
  Age: 79 Year
  Sex: Female
  Weight: 88 kg

DRUGS (1)
  1. OMEPRAZOLE [Suspect]
     Active Substance: OMEPRAZOLE
     Indication: Gastrooesophageal reflux disease
     Dosage: ONE PILL A DAY
     Route: 065
     Dates: start: 202201

REACTIONS (4)
  - Gait disturbance [Unknown]
  - Haematuria [Recovered/Resolved]
  - Muscular weakness [Unknown]
  - Pain [Unknown]

NARRATIVE: CASE EVENT DATE: 20230901
